FAERS Safety Report 10623182 (Version 1)
Quarter: 2014Q4

REPORT INFORMATION
  Report Type: Spontaneous
  Country: None (occurrence: None)
  Receive Date: 20141202
  Receipt Date: 20141202
  Transmission Date: 20150529
  Serious: Yes (Disabling)
  Sender: FDA-Public Use
  Company Number: None

PATIENT
  Age: 35 Year
  Sex: Female
  Weight: 54.43 kg

DRUGS (1)
  1. ANTI-DEPRESSANT MIRTAZAPINE OR AVANZA 15MG [Suspect]
     Active Substance: MIRTAZAPINE
     Indication: ANXIETY

REACTIONS (14)
  - Brain injury [None]
  - Drug hypersensitivity [None]
  - Dementia [None]
  - Quality of life decreased [None]
  - Depression [None]
  - Apathy [None]
  - Confusional state [None]
  - Drug ineffective [None]
  - Akathisia [None]
  - Insomnia [None]
  - Withdrawal syndrome [None]
  - Memory impairment [None]
  - Loss of employment [None]
  - Suicidal ideation [None]

NARRATIVE: CASE EVENT DATE: 20141123
